FAERS Safety Report 5017457-8 (Version None)
Quarter: 2006Q2

REPORT INFORMATION
  Report Type: 
  Country: None (occurrence: None)
  Receive Date: 20060601
  Receipt Date: 20060601
  Transmission Date: 20061013
  Serious: Yes (Life-Threatening, Hospitalization, Other)
  Sender: FDA-Public Use
  Company Number: None

PATIENT
  Sex: Female
  Weight: 85.2762 kg

DRUGS (1)
  1. ORTHO EVRA [Suspect]
     Indication: CONTRACEPTION
     Dosage: 1 PATCH  1 PATCH/WK TRANSDERMAL
     Route: 062
     Dates: start: 20050501, end: 20050801

REACTIONS (2)
  - PULMONARY EMBOLISM [None]
  - THROMBOSIS [None]
